FAERS Safety Report 5562780-1 (Version None)
Quarter: 2007Q4

REPORT INFORMATION
  Report Type: 
  Country: None (occurrence: None)
  Receive Date: 20071217
  Receipt Date: 20071205
  Transmission Date: 20080405
  Serious: Yes (Death, Other)
  Sender: FDA-Public Use
  Company Number: AU-NOVOPROD-269986

PATIENT
  Age: 72 Year
  Sex: Male
  Weight: 100 kg

DRUGS (15)
  1. NOVOSEVEN [Suspect]
     Indication: HAEMORRHAGE
     Dosage: 9.6 MG, SINGLE
     Route: 042
     Dates: start: 20070817, end: 20070817
  2. ASPIRIN [Concomitant]
     Dates: end: 20070801
  3. ACETAMINOPHEN [Concomitant]
  4. HEPARIN [Concomitant]
  5. ESOMEPRAZOLE [Concomitant]
  6. AVAPRO [Concomitant]
  7. CARTIA                             /00002701/ [Concomitant]
  8. ATENOLOL [Concomitant]
  9. METFORMIN HCL [Concomitant]
  10. GEMFIBROZIL [Concomitant]
  11. PRAZOSIN HCL [Concomitant]
  12. AMLODIPINE [Concomitant]
  13. ROCALTROL [Concomitant]
  14. VITAMIN K TAB [Concomitant]
  15. TETANUS TOXOID [Concomitant]

REACTIONS (2)
  - ATRIAL FIBRILLATION [None]
  - HYPOTENSION [None]
